FAERS Safety Report 24981416 (Version 1)
Quarter: 2025Q1

REPORT INFORMATION
  Report Type: Spontaneous
  Country: US (occurrence: US)
  Receive Date: 20250218
  Receipt Date: 20250218
  Transmission Date: 20250408
  Serious: No
  Sender: ABBVIE
  Company Number: US-ABBVIE-6135762

PATIENT

DRUGS (1)
  1. BOTOX [Suspect]
     Active Substance: ONABOTULINUMTOXINA
     Indication: Gastrointestinal surgery
     Route: 065

REACTIONS (3)
  - Off label use [Unknown]
  - Product closure removal difficult [Unknown]
  - Product packaging quantity issue [Unknown]
